FAERS Safety Report 9186526 (Version 2)
Quarter: 2013Q3

REPORT INFORMATION
  Report Type: Spontaneous
  Country: US (occurrence: US)
  Receive Date: 20130325
  Receipt Date: 20130830
  Transmission Date: 20140515
  Serious: Yes (Hospitalization, Other)
  Sender: FDA-Public Use
  Company Number: US-PFIZER INC-2013093055

PATIENT
  Age: 51 Year
  Sex: Female

DRUGS (9)
  1. CHANTIX [Suspect]
     Dosage: UNK
     Dates: start: 20071009, end: 20080401
  2. CHANTIX [Suspect]
     Dosage: 1 MG, UNK
     Dates: start: 20080327
  3. HUMALOG [Concomitant]
     Indication: DIABETES MELLITUS
     Dosage: UNK
     Dates: start: 20070405
  4. LEVOTHYROXINE [Concomitant]
     Indication: HYPOTHYROIDISM
     Dosage: 200 UG, UNK
     Route: 048
     Dates: start: 20070405
  5. AMITRIPTYLINE [Concomitant]
     Indication: DEPRESSION
     Dosage: 50 MG, UNK
     Route: 048
     Dates: start: 20070423
  6. RANITIDINE [Concomitant]
     Indication: GASTROOESOPHAGEAL REFLUX DISEASE
     Dosage: 300 MG, UNK
     Route: 048
     Dates: start: 20070423
  7. TIZANIDINE [Concomitant]
     Indication: MUSCLE SPASTICITY
     Dosage: 4 MG, UNK
     Route: 048
     Dates: start: 20070604
  8. LOVASTATIN [Concomitant]
     Indication: CORONARY ARTERY DISEASE
     Dosage: 40 MG, UNK
     Route: 048
     Dates: start: 20070604
  9. CYMBALTA [Concomitant]
     Indication: DEPRESSION
     Dosage: 60 MG, UNK
     Dates: start: 20080827

REACTIONS (2)
  - Intentional overdose [Unknown]
  - Suicide attempt [Unknown]
